FAERS Safety Report 20738793 (Version 1)
Quarter: 2022Q2

REPORT INFORMATION
  Report Type: Spontaneous
  Country: JP (occurrence: JP)
  Receive Date: 20220422
  Receipt Date: 20220422
  Transmission Date: 20220721
  Serious: Yes (Hospitalization, Other)
  Sender: FDA-Public Use
  Company Number: JP-Accord-261351

PATIENT
  Age: 61 Year
  Sex: Male
  Weight: 66.8 kg

DRUGS (3)
  1. TACROLIMUS [Suspect]
     Active Substance: TACROLIMUS
     Indication: Polymyositis
  2. PREDNISOLONE [Suspect]
     Active Substance: PREDNISOLONE
     Indication: Polymyositis
     Route: 048
  3. CYCLOPHOSPHAMIDE [Suspect]
     Active Substance: CYCLOPHOSPHAMIDE
     Indication: Polymyositis
     Route: 042

REACTIONS (5)
  - Bronchopulmonary aspergillosis [Unknown]
  - Mycobacterium avium complex infection [Unknown]
  - Alveolar proteinosis [Unknown]
  - Respiratory failure [Unknown]
  - Aspergillus infection [Unknown]
